FAERS Safety Report 21360128 (Version 1)
Quarter: 2022Q3

REPORT INFORMATION
  Report Type: Spontaneous
  Country: US (occurrence: US)
  Receive Date: 20220921
  Receipt Date: 20220921
  Transmission Date: 20221027
  Serious: No
  Sender: FDA-Public Use
  Company Number: US-PFIZER INC-PV202200066187

PATIENT
  Age: 74 Year
  Sex: Female

DRUGS (1)
  1. DOFETILIDE [Suspect]
     Active Substance: DOFETILIDE
     Indication: Atrial fibrillation
     Dosage: 375 UG, 2X/DAY (TAKE 3 TABS BY MOUTH EVERY 12 HOURS)
     Route: 048

REACTIONS (1)
  - Arthralgia [Unknown]
